FAERS Safety Report 12812645 (Version 2)
Quarter: 2016Q4

REPORT INFORMATION
  Report Type: Report from Study
  Country: JP (occurrence: JP)
  Receive Date: 20161005
  Receipt Date: 20161130
  Transmission Date: 20170207
  Serious: Yes (Hospitalization, Other)
  Sender: FDA-Public Use
  Company Number: JP-B.I. PHARMACEUTICALS,INC./RIDGEFIELD-2016-BI-52456BI

PATIENT
  Age: 71 Year
  Sex: Male
  Weight: 62 kg

DRUGS (3)
  1. DABIGATRAN [Suspect]
     Active Substance: DABIGATRAN
     Indication: ATRIAL FIBRILLATION
     Route: 048
     Dates: start: 20151211
  2. VERAPAMIL HYDROCHLORIDE. [Suspect]
     Active Substance: VERAPAMIL HYDROCHLORIDE
     Indication: SUPRAVENTRICULAR TACHYCARDIA
     Dosage: DAILY DOSE: 40MG PRN
     Route: 048
     Dates: start: 20160225, end: 20160804
  3. PLISICAINIDE HYDROCHLORIDE [Suspect]
     Active Substance: PILSICAINIDE HYDROCHLORIDE
     Indication: ATRIAL FLUTTER
     Route: 048
     Dates: start: 20160805

REACTIONS (3)
  - Atrial flutter [Not Recovered/Not Resolved]
  - Atrial flutter [Recovered/Resolved]
  - Atrial fibrillation [Not Recovered/Not Resolved]

NARRATIVE: CASE EVENT DATE: 20160804
